FAERS Safety Report 26136777 (Version 1)
Quarter: 2025Q4

REPORT INFORMATION
  Report Type: Spontaneous
  Country: AU (occurrence: AU)
  Receive Date: 20251209
  Receipt Date: 20251209
  Transmission Date: 20260117
  Serious: Yes (Other)
  Sender: ORGANON
  Company Number: AU-PFIZER INC-PV202500069499

PATIENT
  Age: 60 Year
  Sex: Female

DRUGS (9)
  1. ALENDRONATE SODIUM [Suspect]
     Active Substance: ALENDRONATE SODIUM
     Indication: Osteoporosis
     Dosage: UNK
  2. MAGNESIUM SULFATE [Suspect]
     Active Substance: MAGNESIUM SULFATE
     Dosage: UNK
  3. MAGNESIUM SULFATE [Suspect]
     Active Substance: MAGNESIUM SULFATE
     Indication: Mineral supplementation
  4. Actrapid (insulin) [Concomitant]
     Indication: Type 1 diabetes mellitus
  5. Protaphane (insulin) [Concomitant]
     Indication: Type 1 diabetes mellitus
  6. GEMFIBROZIL [Concomitant]
     Active Substance: GEMFIBROZIL
  7. NIMODIPINE [Concomitant]
     Active Substance: NIMODIPINE
  8. RAMIPRIL [Concomitant]
     Active Substance: RAMIPRIL
  9. PRAVASTATIN [Concomitant]
     Active Substance: PRAVASTATIN

REACTIONS (2)
  - Hypocalcaemia [Recovered/Resolved]
  - Blood parathyroid hormone decreased [Recovered/Resolved]
